FAERS Safety Report 12088961 (Version 2)
Quarter: 2017Q1

REPORT INFORMATION
  Report Type: Spontaneous
  Country: US (occurrence: US)
  Receive Date: 20160218
  Receipt Date: 20170310
  Transmission Date: 20170428
  Serious: No
  Sender: FDA-Public Use
  Company Number: US-TEVA-629507USA

PATIENT
  Sex: Male

DRUGS (1)
  1. METHYLPREDNISOLONE. [Suspect]
     Active Substance: METHYLPREDNISOLONE
     Route: 040
     Dates: start: 20160122

REACTIONS (3)
  - Injection site pain [Unknown]
  - Incorrect route of drug administration [Unknown]
  - Injection site bruising [Unknown]
